FAERS Safety Report 14612997 (Version 1)
Quarter: 2018Q1

REPORT INFORMATION
  Report Type: Spontaneous
  Country: NL (occurrence: NL)
  Receive Date: 20180308
  Receipt Date: 20180308
  Transmission Date: 20180509
  Serious: Yes (Hospitalization, Other)
  Sender: FDA-Public Use
  Company Number: NL-BRISTOL-MYERS SQUIBB COMPANY-BMS-2018-019219

PATIENT
  Age: 46 Year
  Sex: Male
  Weight: 125 kg

DRUGS (1)
  1. ELIQUIS [Suspect]
     Active Substance: APIXABAN
     Indication: PULMONARY EMBOLISM
     Dosage: 5 MG, BID
     Route: 065
     Dates: start: 20180130, end: 20180207

REACTIONS (2)
  - Prescribed underdose [Unknown]
  - Erythema multiforme [Recovering/Resolving]

NARRATIVE: CASE EVENT DATE: 20180207
